FAERS Safety Report 14422724 (Version 1)
Quarter: 2018Q1

REPORT INFORMATION
  Report Type: Spontaneous
  Country: JP (occurrence: JP)
  Receive Date: 20180123
  Receipt Date: 20180123
  Transmission Date: 20180509
  Serious: Yes (Death, Hospitalization)
  Sender: FDA-Public Use
  Company Number: JP-SUN PHARMACEUTICAL INDUSTRIES LTD-2018R3-160680

PATIENT
  Sex: Female

DRUGS (6)
  1. TEGRETOL [Suspect]
     Active Substance: CARBAMAZEPINE
     Indication: SCHIZOPHRENIA
     Dosage: 600 MG, DAILY
     Route: 048
  2. SULTOPRIDE [Suspect]
     Active Substance: SULTOPRIDE
     Indication: SCHIZOPHRENIA
     Dosage: 600 MG, DAILY
     Route: 065
  3. BIPERIDEN [Suspect]
     Active Substance: BIPERIDEN
     Indication: SCHIZOPHRENIA
     Dosage: 6 MG, DAILY
     Route: 065
  4. LITHIUM. [Suspect]
     Active Substance: LITHIUM
     Indication: SCHIZOPHRENIA
     Dosage: 600 MG, DAILY
     Route: 065
  5. ZOTEPINE [Suspect]
     Active Substance: ZOTEPINE
     Indication: SCHIZOPHRENIA
     Dosage: 50 MG, DAILY
     Route: 065
  6. NITRAZEPAM [Suspect]
     Active Substance: NITRAZEPAM
     Indication: SCHIZOPHRENIA
     Dosage: 10 MG, DAILY
     Route: 065

REACTIONS (9)
  - Nausea [Unknown]
  - Insomnia [Unknown]
  - Sudden death [Fatal]
  - Anaemia [Unknown]
  - Megacolon [Unknown]
  - Hypoalbuminaemia [Unknown]
  - Pneumonia [Unknown]
  - Constipation [Unknown]
  - Neuroleptic malignant syndrome [Unknown]
